FAERS Safety Report 10111396 (Version 2)
Quarter: 2014Q4

REPORT INFORMATION
  Report Type: Other
  Country: US (occurrence: US)
  Receive Date: 20140425
  Receipt Date: 20141218
  Transmission Date: 20150528
  Serious: Yes (Hospitalization, Other)
  Sender: FDA-Public Use
  Company Number: US-GSKPPD-2014GSK011216

PATIENT
  Age: 62 Year
  Sex: Male

DRUGS (7)
  1. NIFEDIPINE. [Concomitant]
     Active Substance: NIFEDIPINE
  2. CAPTOPRIL. [Concomitant]
     Active Substance: CAPTOPRIL
  3. TOPROL XL [Concomitant]
     Active Substance: METOPROLOL SUCCINATE
  4. NITROGLYCERIN. [Concomitant]
     Active Substance: NITROGLYCERIN
  5. PLAVIX [Concomitant]
     Active Substance: CLOPIDOGREL BISULFATE
  6. ECOTRIN [Concomitant]
     Active Substance: ASPIRIN
  7. AVANDIA [Suspect]
     Active Substance: ROSIGLITAZONE MALEATE
     Indication: DIABETES MELLITUS
     Dosage: DATES OF AVANDIA USE COULD NOT BE CONFIRMED IN RECORDS REVIEWED.
     Route: 048

REACTIONS (4)
  - Myocardial infarction [Unknown]
  - Coronary artery disease [Recovered/Resolved]
  - Acute coronary syndrome [Recovered/Resolved]
  - Essential hypertension [Recovered/Resolved]

NARRATIVE: CASE EVENT DATE: 20070719
